FAERS Safety Report 7078162-X (Version None)
Quarter: 2010Q4

REPORT INFORMATION
  Report Type: 
  Country: None (occurrence: None)
  Receive Date: 20101101
  Receipt Date: 20101101
  Transmission Date: 20110411
  Serious: Yes (Hospitalization)
  Sender: FDA-Public Use
  Company Number: None

PATIENT
  Sex: Male
  Weight: 93.441 kg

DRUGS (2)
  1. RECLAST [Suspect]
     Indication: OSTEOPENIA
     Dosage: 5MG IV 0 YR IV
     Route: 042
     Dates: start: 20100809
  2. RECLAST [Suspect]
     Indication: STEROID THERAPY
     Dosage: 5MG IV 0 YR IV
     Route: 042
     Dates: start: 20100809

REACTIONS (4)
  - CHEST PAIN [None]
  - EJECTION FRACTION DECREASED [None]
  - PALPITATIONS [None]
  - TACHYCARDIA [None]
